FAERS Safety Report 9859612 (Version 5)
Quarter: 2015Q2

REPORT INFORMATION
  Report Type: Spontaneous
  Country: US (occurrence: US)
  Receive Date: 20140131
  Receipt Date: 20150424
  Transmission Date: 20150821
  Serious: Yes (Hospitalization, Other)
  Sender: FDA-Public Use
  Company Number: US-009507513-1401USA011281

PATIENT
  Sex: Female

DRUGS (4)
  1. FOSAMAX [Suspect]
     Active Substance: ALENDRONATE SODIUM
     Indication: OSTEOPENIA
     Dosage: 70 MG, QW
     Route: 048
     Dates: start: 20010117, end: 20110509
  2. FOSAMAX [Suspect]
     Active Substance: ALENDRONATE SODIUM
     Indication: OSTEOPOROSIS
     Dosage: 5 MG, QD
     Route: 048
     Dates: start: 19970929, end: 19980129
  3. ALENDRONATE SODIUM. [Suspect]
     Active Substance: ALENDRONATE SODIUM
     Indication: OSTEOPENIA
     Dosage: 70 MG, QW
     Route: 048
     Dates: start: 20110513, end: 201304
  4. CALCIUM [Concomitant]
     Active Substance: CALCIUM
     Indication: OSTEOPENIA
     Dosage: 600 IU, BID
     Route: 048
     Dates: start: 1997

REACTIONS (18)
  - Oral surgery [Unknown]
  - Open reduction of fracture [Unknown]
  - Presyncope [Unknown]
  - Osteoarthritis [Unknown]
  - Peptic ulcer [Unknown]
  - Gastrooesophageal reflux disease [Unknown]
  - Femur fracture [Unknown]
  - Pruritus [Unknown]
  - Skin abrasion [Unknown]
  - Tooth extraction [Unknown]
  - Hand fracture [Unknown]
  - Ankle fracture [Unknown]
  - Tonsillectomy [Unknown]
  - Femur fracture [Unknown]
  - Adverse drug reaction [Unknown]
  - Hand fracture [Unknown]
  - Open reduction of fracture [Unknown]
  - Hypothyroidism [Not Recovered/Not Resolved]

NARRATIVE: CASE EVENT DATE: 2001
